FAERS Safety Report 9290709 (Version 1)
Quarter: 2013Q2

REPORT INFORMATION
  Report Type: Spontaneous
  Country: US (occurrence: None)
  Receive Date: 20130514
  Receipt Date: 20130514
  Transmission Date: 20140414
  Serious: Yes (Hospitalization)
  Sender: FDA-Public Use
  Company Number: None

PATIENT
  Age: 62 Year
  Sex: Female
  Weight: 65.32 kg

DRUGS (1)
  1. SUPREP [Suspect]
     Indication: COLONOSCOPY
     Dosage: 17.5GM/3.13GR/1.6 GM ONCE PO
     Route: 048
     Dates: start: 20130321, end: 20130321

REACTIONS (4)
  - Abdominal pain [None]
  - Impaired work ability [None]
  - Duodenal ulcer [None]
  - Irritable bowel syndrome [None]
